FAERS Safety Report 21332412 (Version 1)
Quarter: 2022Q3

REPORT INFORMATION
  Report Type: Spontaneous
  Country: CN (occurrence: None)
  Receive Date: 20220914
  Receipt Date: 20220914
  Transmission Date: 20221027
  Serious: Yes (Other)
  Sender: FDA-Public Use
  Company Number: CN-MLMSERVICE-20220905-3775339-1

PATIENT
  Age: 19 Year
  Sex: Male

DRUGS (2)
  1. TEICOPLANIN [Concomitant]
     Active Substance: TEICOPLANIN
     Indication: Streptococcal infection
     Route: 042
     Dates: start: 20210109
  2. MEROPENEM [Suspect]
     Active Substance: MEROPENEM
     Indication: Endocarditis
     Route: 042
     Dates: start: 20210109, end: 20210113

REACTIONS (2)
  - Muscle spasms [Unknown]
  - Delirium [Unknown]

NARRATIVE: CASE EVENT DATE: 20210113
